FAERS Safety Report 18159194 (Version 1)
Quarter: 2020Q3

REPORT INFORMATION
  Report Type: Spontaneous
  Country: US (occurrence: US)
  Receive Date: 20200818
  Receipt Date: 20200818
  Transmission Date: 20201103
  Serious: Yes (Hospitalization, Other)
  Sender: FDA-Public Use
  Company Number: US-JNJFOC-20200811175

PATIENT
  Age: 78 Year
  Sex: Male

DRUGS (28)
  1. IPRATROPIUM [Concomitant]
     Active Substance: IPRATROPIUM
     Indication: RHINITIS
     Route: 045
  2. OFEV [Suspect]
     Active Substance: NINTEDANIB
     Route: 048
     Dates: start: 20190510
  3. OFEV [Suspect]
     Active Substance: NINTEDANIB
     Route: 065
  4. CLARITIN?D NOS [Concomitant]
     Active Substance: LORATADINE\PSEUDOEPHEDRINE SULFATE
     Indication: RHINITIS
     Route: 065
  5. VITAMIN D                          /00107901/ [Concomitant]
     Active Substance: ERGOCALCIFEROL
  6. OFEV [Suspect]
     Active Substance: NINTEDANIB
     Route: 065
  7. OFEV [Suspect]
     Active Substance: NINTEDANIB
     Route: 065
  8. COMBIGAN [Concomitant]
     Active Substance: BRIMONIDINE TARTRATE\TIMOLOL MALEATE
  9. CALCIUM CITRATE [Concomitant]
     Active Substance: CALCIUM CITRATE
     Indication: OSTEOPENIA
     Route: 065
  10. CALCIUM                            /00060701/ [Concomitant]
     Active Substance: CALCIUM
  11. OFEV [Suspect]
     Active Substance: NINTEDANIB
     Route: 065
  12. OFEV [Suspect]
     Active Substance: NINTEDANIB
     Route: 065
  13. OMEPRAZOLE. [Concomitant]
     Active Substance: OMEPRAZOLE
     Indication: GASTROOESOPHAGEAL REFLUX DISEASE
     Route: 065
  14. SERTRALINE [Concomitant]
     Active Substance: SERTRALINE HYDROCHLORIDE
  15. IMODIUM [Suspect]
     Active Substance: LOPERAMIDE HYDROCHLORIDE
     Indication: DIARRHOEA
     Route: 065
     Dates: start: 201903
  16. OFEV [Suspect]
     Active Substance: NINTEDANIB
     Indication: IDIOPATHIC PULMONARY FIBROSIS
     Route: 048
     Dates: start: 20181212, end: 20190507
  17. OFEV [Suspect]
     Active Substance: NINTEDANIB
     Route: 065
  18. LOMOTIL                            /00384302/ [Suspect]
     Active Substance: LOPERAMIDE HYDROCHLORIDE
     Indication: DIARRHOEA
     Route: 065
     Dates: start: 201804, end: 201903
  19. ASPIRIN                            /00002701/ [Concomitant]
     Active Substance: ASPIRIN
  20. CALCIUM CITRATE/VITAMIN D [Concomitant]
     Active Substance: CALCIUM CITRATE\VITAMIN D
     Indication: OSTEOPENIA
     Route: 065
  21. CHOLESTYRAMINE. [Concomitant]
     Active Substance: CHOLESTYRAMINE
     Indication: DIARRHOEA
     Route: 065
     Dates: start: 201804, end: 201903
  22. MUCINEX DM [Concomitant]
     Active Substance: DEXTROMETHORPHAN HYDROBROMIDE\GUAIFENESIN
  23. ATROVENT HFA [Concomitant]
     Active Substance: IPRATROPIUM BROMIDE
  24. GABAPENTIN. [Concomitant]
     Active Substance: GABAPENTIN
  25. OFEV [Suspect]
     Active Substance: NINTEDANIB
     Route: 048
     Dates: start: 20200205
  26. OFEV [Suspect]
     Active Substance: NINTEDANIB
     Route: 065
  27. FLUTICASONE. [Concomitant]
     Active Substance: FLUTICASONE
     Indication: RHINITIS
     Route: 045
  28. TAMSULOSIN [Concomitant]
     Active Substance: TAMSULOSIN
     Indication: PROSTATOMEGALY
     Route: 065

REACTIONS (14)
  - Osteopenia [Unknown]
  - Constipation [Not Recovered/Not Resolved]
  - Back pain [Unknown]
  - Seasonal allergy [Recovering/Resolving]
  - Cough [Recovering/Resolving]
  - Multiple allergies [Unknown]
  - Rhinorrhoea [Recovering/Resolving]
  - Sinusitis [Recovered/Resolved]
  - Nasal congestion [Not Recovered/Not Resolved]
  - Diarrhoea [Not Recovered/Not Resolved]
  - Small intestinal obstruction [Not Recovered/Not Resolved]
  - Insomnia [Not Recovered/Not Resolved]
  - Anal incontinence [Recovered/Resolved]
  - Weight decreased [Not Recovered/Not Resolved]

NARRATIVE: CASE EVENT DATE: 201906
